FAERS Safety Report 6834641-9 (Version None)
Quarter: 2010Q3

REPORT INFORMATION
  Report Type: 
  Country: None (occurrence: None)
  Receive Date: 20100712
  Receipt Date: 20070418
  Transmission Date: 20110219
  Serious: No
  Sender: FDA-Public Use
  Company Number: US-PFIZER INC-2007032070

PATIENT
  Sex: Male
  Weight: 65.909 kg

DRUGS (9)
  1. CHANTIX [Suspect]
     Indication: SMOKING CESSATION THERAPY
     Dates: start: 20070406, end: 20070413
  2. GABAPENTIN [Concomitant]
  3. ISOBIDE [Concomitant]
  4. NEXIUM [Concomitant]
  5. DITROPAN [Concomitant]
  6. FISH OIL [Concomitant]
  7. ZETIA [Concomitant]
  8. ASPIRIN [Concomitant]
  9. NITROGLYCERIN [Concomitant]

REACTIONS (3)
  - ARTHRALGIA [None]
  - CONSTIPATION [None]
  - MYALGIA [None]
